FAERS Safety Report 25206568 (Version 2)
Quarter: 2025Q2

REPORT INFORMATION
  Report Type: Report from Study
  Country: CA (occurrence: CA)
  Receive Date: 20250417
  Receipt Date: 20250430
  Transmission Date: 20250716
  Serious: Yes (Congenital Anomaly)
  Sender: EMD SERONO INC
  Company Number: CA-Merck Healthcare KGaA-2025017050

PATIENT
  Sex: Female

DRUGS (1)
  1. MAVENCLAD [Suspect]
     Active Substance: CLADRIBINE
     Indication: Multiple sclerosis
     Dates: start: 20230821, end: 202309

REACTIONS (1)
  - Muscular dystrophy [Not Recovered/Not Resolved]
